FAERS Safety Report 8235743-5 (Version None)
Quarter: 2012Q1

REPORT INFORMATION
  Report Type: 
  Country: None (occurrence: None)
  Receive Date: 20120326
  Receipt Date: 20120320
  Transmission Date: 20120608
  Serious: Yes (Other)
  Sender: FDA-Public Use
  Company Number: PHHY2012VE023421

PATIENT
  Sex: Female

DRUGS (5)
  1. METHOTREXATE [Concomitant]
     Indication: RHEUMATOID ARTHRITIS
     Dosage: ONCE A WEEK
     Route: 042
  2. LOXOPROFEN SODIUM [Concomitant]
     Indication: PAIN
  3. ZOLEDRONOC ACID [Suspect]
     Dosage: 5 MG, ONCE A YEAR
     Route: 042
     Dates: start: 20110209
  4. HUMIRA [Concomitant]
     Dosage: 1 DF(INJECTION) EACH FIFTEEN DAYS
     Route: 042
  5. ZOLEDRONOC ACID [Suspect]
     Indication: OSTEOPOROSIS
     Dosage: 5 MG, ONCE A YEAR
     Route: 042
     Dates: start: 20091110

REACTIONS (1)
  - PNEUMONIA [None]
